FAERS Safety Report 18062904 (Version 1)
Quarter: 2020Q3

REPORT INFORMATION
  Report Type: Spontaneous
  Country: GB (occurrence: GB)
  Receive Date: 20200724
  Receipt Date: 20200724
  Transmission Date: 20201103
  Serious: Yes (Other)
  Sender: FDA-Public Use
  Company Number: GB-TEVA-2020-GB-1803914

PATIENT
  Age: 43 Year
  Sex: Female
  Weight: 58.4 kg

DRUGS (12)
  1. STEXEROL?D3 [Concomitant]
     Dosage: 1000 IU
  2. CIPROFLOXACIN. [Suspect]
     Active Substance: CIPROFLOXACIN
     Indication: RESPIRATORY TRACT INFECTION
     Dosage: 2 GRAM
     Route: 048
     Dates: start: 20200625, end: 20200627
  3. DYMISTA [Concomitant]
     Active Substance: AZELASTINE HYDROCHLORIDE\FLUTICASONE PROPIONATE
     Dosage: 1 SQUIRT TO EACH NOSTRIL TWICE DAILY, UNIT DOSE:  4 DOSAGE FORMS
     Route: 045
  4. MAGNESIUM [Concomitant]
     Active Substance: MAGNESIUM
  5. AZITHROMYCIN ANHYDROUS. [Concomitant]
     Active Substance: AZITHROMYCIN ANHYDROUS
     Dosage: 250 MG
  6. CITALOPRAM [Concomitant]
     Active Substance: CITALOPRAM HYDROBROMIDE
     Dosage: 20 MG
  7. CANNABIDIOL [Concomitant]
     Active Substance: CANNABIDIOL
  8. CLOTRIMAZOLE. [Concomitant]
     Active Substance: CLOTRIMAZOLE
     Dosage: 2 ?3 TIMES DAILY
  9. ZUMENON [Concomitant]
     Active Substance: ESTRADIOL
     Indication: HORMONE REPLACEMENT THERAPY
     Dosage: 1 MG
  10. SALBUTAMOL [Concomitant]
     Active Substance: ALBUTEROL
     Dosage: PUFFS, 2 DOSAGE FORMS
  11. HYDROXOCOBALAMIN [Concomitant]
     Active Substance: HYDROXOCOBALAMIN
     Dosage: 1 MG
     Route: 030
  12. SODIUM CHLORIDE SOLUTION 0.9% [Concomitant]
     Active Substance: SODIUM CHLORIDE
     Dosage: 8 ML, FORM OF ADMIN. TEXT : SOLUTION

REACTIONS (3)
  - Depressed mood [Recovered/Resolved]
  - Depression [Recovered/Resolved]
  - Suicidal ideation [Recovered/Resolved]

NARRATIVE: CASE EVENT DATE: 20200625
